FAERS Safety Report 8791461 (Version 1)
Quarter: 2012Q4

REPORT INFORMATION
  Report Type: Spontaneous
  Country: US (occurrence: None)
  Receive Date: 20120914
  Receipt Date: 20120914
  Transmission Date: 20130627
  Serious: Yes (Life-Threatening, Hospitalization, Disabling, Other)
  Sender: FDA-Public Use
  Company Number: None

PATIENT
  Sex: Male
  Weight: 53 kg

DRUGS (1)
  1. KETOCONAZOLE [Suspect]
     Indication: FUNGAL RASH
     Dosage: KETOCONAZOLE 200 MG 8 DAY X 7 DAYS P.O.

about the 9th to 16th
     Route: 048

REACTIONS (4)
  - Depression [None]
  - Memory impairment [None]
  - Educational problem [None]
  - Psychotic disorder [None]
